FAERS Safety Report 17261269 (Version 3)
Quarter: 2021Q1

REPORT INFORMATION
  Report Type: Other
  Country: US (occurrence: US)
  Receive Date: 20200113
  Receipt Date: 20210201
  Transmission Date: 20210419
  Serious: Yes (Other)
  Sender: FDA-Public Use
  Company Number: US-ROCHE-2518760

PATIENT

DRUGS (3)
  1. CARFILZOMIB [Suspect]
     Active Substance: CARFILZOMIB
     Indication: NON-HODGKIN^S LYMPHOMA REFRACTORY
     Route: 042
  2. BENDAMUSTINE [Suspect]
     Active Substance: BENDAMUSTINE
     Indication: NON-HODGKIN^S LYMPHOMA REFRACTORY
     Route: 042
  3. RITUXIMAB. [Suspect]
     Active Substance: RITUXIMAB
     Indication: NON-HODGKIN^S LYMPHOMA REFRACTORY
     Dosage: ON DAY 9 OF CYCLE 1, AND DAY 1 OF SUBSEQUENT CYCLES
     Route: 041

REACTIONS (11)
  - Thrombocytopenia [Unknown]
  - Pneumonia [Unknown]
  - Febrile neutropenia [Unknown]
  - Pyrexia [Unknown]
  - Vomiting [Unknown]
  - Acute kidney injury [Unknown]
  - Leukopenia [Unknown]
  - Cerebral ischaemia [Unknown]
  - Nausea [Unknown]
  - Anaemia [Unknown]
  - Neutropenia [Unknown]
